FAERS Safety Report 6479920-2 (Version None)
Quarter: 2009Q4

REPORT INFORMATION
  Report Type: 
  Country: None (occurrence: None)
  Receive Date: 20091208
  Receipt Date: 20091112
  Transmission Date: 20100525
  Serious: Yes (Other)
  Sender: FDA-Public Use
  Company Number: US-SANOFI-AVENTIS-2009SA001660

PATIENT

DRUGS (1)
  1. MULTAQ [Suspect]
     Route: 065
     Dates: end: 20091112

REACTIONS (1)
  - CARDIAC FAILURE CONGESTIVE [None]
